FAERS Safety Report 7646886-9 (Version None)
Quarter: 2011Q3

REPORT INFORMATION
  Report Type: 
  Country: None (occurrence: None)
  Receive Date: 20110729
  Receipt Date: 20110729
  Transmission Date: 20111222
  Serious: Yes (Life-Threatening, Disabling)
  Sender: FDA-Public Use
  Company Number: None

PATIENT
  Age: 49 Year
  Sex: Male
  Weight: 58.0604 kg

DRUGS (1)
  1. SYMBICORT [Suspect]
     Indication: TOTAL LUNG CAPACITY DECREASED
     Dosage: 2 PUFF DAILY INHALE
     Route: 055
     Dates: start: 20100901, end: 20101001

REACTIONS (2)
  - LUNG DISORDER [None]
  - DYSPNOEA [None]
